FAERS Safety Report 9701612 (Version 2)
Quarter: 2013Q4

REPORT INFORMATION
  Report Type: Spontaneous
  Country: US (occurrence: US)
  Receive Date: 20131119
  Receipt Date: 20131119
  Transmission Date: 20140711
  Serious: Yes (Other)
  Sender: FDA-Public Use
  Company Number: US-ORACLE-2011S1000114

PATIENT
  Age: 58 Year
  Sex: Male

DRUGS (18)
  1. KRYSTEXXA INJECTION [Suspect]
     Indication: GOUT
     Route: 042
     Dates: start: 20111130, end: 20111130
  2. KRYSTEXXA INJECTION [Suspect]
     Indication: GOUT
     Route: 042
     Dates: start: 20111108, end: 20111108
  3. ZYRTEC [Concomitant]
     Indication: PREMEDICATION
     Dates: start: 20111130, end: 20111130
  4. ZYRTEC [Concomitant]
     Indication: PREMEDICATION
     Dates: start: 20111129, end: 20111129
  5. ZYRTEC [Concomitant]
     Indication: PREMEDICATION
     Dates: start: 20111108, end: 20111108
  6. ZYRTEC [Concomitant]
     Indication: PREMEDICATION
     Dates: start: 20111107, end: 20111107
  7. TYLENOL /00020001/ [Concomitant]
     Indication: PREMEDICATION
     Dates: start: 20111130, end: 20111130
  8. TYLENOL /00020001/ [Concomitant]
     Indication: PREMEDICATION
     Dates: start: 20111108, end: 20111108
  9. HYDROCORTISONE [Concomitant]
     Indication: PREMEDICATION
     Route: 042
     Dates: start: 20111130, end: 20111130
  10. HYDROCORTISONE [Concomitant]
     Indication: PREMEDICATION
     Route: 042
     Dates: start: 20111108, end: 20111108
  11. LISINOPRIL [Concomitant]
     Indication: PRODUCT USED FOR UNKNOWN INDICATION
  12. ROSUVASTATIN [Concomitant]
     Indication: PRODUCT USED FOR UNKNOWN INDICATION
  13. FEBUXOSTAT [Concomitant]
     Indication: PRODUCT USED FOR UNKNOWN INDICATION
  14. COLCHICINE [Concomitant]
     Indication: PRODUCT USED FOR UNKNOWN INDICATION
  15. PERCOCET /00446701/ [Concomitant]
     Indication: PRODUCT USED FOR UNKNOWN INDICATION
  16. INSULIN [Concomitant]
     Indication: PRODUCT USED FOR UNKNOWN INDICATION
  17. VITAMIN D2 [Concomitant]
     Indication: PRODUCT USED FOR UNKNOWN INDICATION
  18. CALCIUM PLUS VITAMIN D [Concomitant]
     Indication: PRODUCT USED FOR UNKNOWN INDICATION

REACTIONS (1)
  - Infusion related reaction [Unknown]
